FAERS Safety Report 5787842-5 (Version None)
Quarter: 2008Q2

REPORT INFORMATION
  Report Type: 
  Country: None (occurrence: None)
  Receive Date: 20080625
  Receipt Date: 20080229
  Transmission Date: 20081010
  Serious: Yes (Other)
  Sender: FDA-Public Use
  Company Number: US-ASTRAZENECA-2006UW03258

PATIENT
  Age: 44 Year
  Sex: Female
  Weight: 81.8 kg

DRUGS (2)
  1. SEROQUEL [Suspect]
     Indication: SLEEP DISORDER
     Route: 048
     Dates: start: 20030303, end: 20050624
  2. ZYPREXA [Concomitant]
     Dates: start: 20040101, end: 20050101

REACTIONS (7)
  - BLOOD CHOLESTEROL INCREASED [None]
  - CEREBRAL HAEMORRHAGE [None]
  - CONVULSION [None]
  - DIABETES MELLITUS [None]
  - HEADACHE [None]
  - RESPIRATORY ARREST [None]
  - WEIGHT INCREASED [None]
